FAERS Safety Report 13072386 (Version 2)
Quarter: 2017Q1

REPORT INFORMATION
  Report Type: Spontaneous
  Country: US (occurrence: US)
  Receive Date: 20161229
  Receipt Date: 20170328
  Transmission Date: 20170428
  Serious: No
  Sender: FDA-Public Use
  Company Number: US-TEVA-716667USA

PATIENT
  Age: 47 Year
  Sex: Female
  Weight: 94 kg

DRUGS (1)
  1. SYNRIBO [Suspect]
     Active Substance: OMACETAXINE MEPESUCCINATE
     Indication: CHRONIC MYELOID LEUKAEMIA
     Dosage: HOME ADMINISTRATION
     Dates: start: 20161121

REACTIONS (10)
  - Swelling [Unknown]
  - Injection site pruritus [Unknown]
  - Vomiting [Unknown]
  - Muscular weakness [Unknown]
  - Erythema [Unknown]
  - Chills [Unknown]
  - Nausea [Unknown]
  - Incorrect dose administered [Unknown]
  - Fatigue [Unknown]
  - Drug dose omission [Unknown]

NARRATIVE: CASE EVENT DATE: 20161123
